FAERS Safety Report 24553554 (Version 1)
Quarter: 2024Q4

REPORT INFORMATION
  Report Type: Spontaneous
  Country: GR (occurrence: GR)
  Receive Date: 20241028
  Receipt Date: 20241028
  Transmission Date: 20250114
  Serious: No
  Sender: ROCHE
  Company Number: GR-IPSEN Group, Research and Development-2024-00654

PATIENT
  Sex: Female

DRUGS (1)
  1. NUTROPIN AQ [Suspect]
     Active Substance: SOMATROPIN
     Indication: Product used for unknown indication
     Dosage: 10 MG PER 2 ML
     Route: 058

REACTIONS (2)
  - Injection site hypertrophy [Unknown]
  - Wrong technique in product usage process [Unknown]
